FAERS Safety Report 7902068-4 (Version None)
Quarter: 2011Q4

REPORT INFORMATION
  Report Type: 
  Country: None (occurrence: None)
  Receive Date: 20111108
  Receipt Date: 20111031
  Transmission Date: 20120403
  Serious: Yes (Death)
  Sender: FDA-Public Use
  Company Number: FR-TEVA-304405ISR

PATIENT
  Age: 98 Year
  Sex: Female

DRUGS (2)
  1. METHOTREXATE [Suspect]
     Indication: PEMPHIGOID
  2. METHOTREXATE [Suspect]
     Dosage: 1.0714 MILLIGRAM;

REACTIONS (1)
  - FAILURE TO THRIVE [None]
